FAERS Safety Report 8470523-7 (Version None)
Quarter: 2012Q2

REPORT INFORMATION
  Report Type: 
  Country: None (occurrence: None)
  Receive Date: 20120627
  Receipt Date: 20120126
  Transmission Date: 20120825
  Serious: No
  Sender: FDA-Public Use
  Company Number: US-MYLANLABS-2012S1002047

PATIENT
  Sex: Male

DRUGS (2)
  1. BUDESONIDE [Concomitant]
  2. PERFOROMIST [Suspect]
     Route: 055

REACTIONS (1)
  - LIP SWELLING [None]
